FAERS Safety Report 7493474-3 (Version None)
Quarter: 2011Q2

REPORT INFORMATION
  Report Type: 
  Country: None (occurrence: None)
  Receive Date: 20110520
  Receipt Date: 20101229
  Transmission Date: 20111010
  Serious: Yes (Hospitalization, Other)
  Sender: FDA-Public Use
  Company Number: US-BAYER-201037651NA

PATIENT
  Age: 17 Year
  Sex: Female
  Weight: 79 kg

DRUGS (8)
  1. NSAID'S [Concomitant]
     Indication: PAIN
  2. LORTAB [Concomitant]
     Indication: PAIN
  3. GLUCOFAGE [Concomitant]
     Dosage: UNK UNK, TID
  4. YAZ [Suspect]
     Indication: PRODUCT USED FOR UNKNOWN INDICATION
  5. MIRALAX [Concomitant]
  6. YASMIN [Suspect]
     Indication: PRODUCT USED FOR UNKNOWN INDICATION
     Dosage: UNK
     Dates: start: 20030922, end: 20040101
  7. DROSPIRENONE AND ETHINYL ESTRADIOL [Suspect]
     Indication: PRODUCT USED FOR UNKNOWN INDICATION
  8. VIOXX [Concomitant]
     Dosage: UNK UNK, QD

REACTIONS (19)
  - DEEP VEIN THROMBOSIS [None]
  - NAUSEA [None]
  - BACK PAIN [None]
  - METABOLIC SYNDROME [None]
  - ANXIETY [None]
  - DEPRESSION [None]
  - IRRITABILITY [None]
  - POST THROMBOTIC SYNDROME [None]
  - HYPOAESTHESIA [None]
  - MENTAL DISORDER [None]
  - PAIN IN EXTREMITY [None]
  - OEDEMA PERIPHERAL [None]
  - SLEEP DISORDER [None]
  - VOMITING [None]
  - PARAESTHESIA [None]
  - AFFECTIVE DISORDER [None]
  - ANGER [None]
  - CHOLELITHIASIS [None]
  - CONSTIPATION [None]
